APPROVED DRUG PRODUCT: ZANTAC 150
Active Ingredient: RANITIDINE HYDROCHLORIDE
Strength: EQ 150MG BASE
Dosage Form/Route: TABLET;ORAL
Application: N021698 | Product #001
Applicant: CHATTEM INC DBA SANOFI CONSUMER HEALTHCARE
Approved: Aug 31, 2004 | RLD: Yes | RS: No | Type: DISCN